FAERS Safety Report 25389274 (Version 2)
Quarter: 2025Q4

REPORT INFORMATION
  Report Type: Spontaneous
  Country: US (occurrence: US)
  Receive Date: 20250603
  Receipt Date: 20251112
  Transmission Date: 20260117
  Serious: Yes (Other)
  Sender: COOPERSURGICAL
  Company Number: US-COOPERSURGICAL, INC.-2025CPS004524

PATIENT
  Sex: Female
  Weight: 104.31 kg

DRUGS (4)
  1. PARAGARD T 380A [Suspect]
     Active Substance: COPPER
     Indication: Contraception
     Dosage: UNK
     Route: 015
     Dates: start: 20101001
  2. METOPROLOL TARTRATE [Concomitant]
     Active Substance: METOPROLOL TARTRATE
     Dosage: UNK
     Dates: start: 201601
  3. TRINTELLIX [Concomitant]
     Active Substance: VORTIOXETINE HYDROBROMIDE
     Dosage: UNK
     Dates: start: 201601
  4. KLONOPIN [Concomitant]
     Active Substance: CLONAZEPAM
     Dosage: UNK
     Dates: start: 201601

REACTIONS (27)
  - Uterine injury [Not Recovered/Not Resolved]
  - Ovarian cyst [Recovered/Resolved]
  - Salpingo-oophorectomy unilateral [Recovered/Resolved]
  - Ovarian cystectomy [Recovered/Resolved]
  - Device breakage [Not Recovered/Not Resolved]
  - Foreign body in reproductive tract [Not Recovered/Not Resolved]
  - Complication of device removal [Not Recovered/Not Resolved]
  - Embedded device [Not Recovered/Not Resolved]
  - Endometriosis [Not Recovered/Not Resolved]
  - Emotional disorder [Unknown]
  - Unevaluable event [Unknown]
  - Procedural haemorrhage [Unknown]
  - Urinary tract disorder [Unknown]
  - Dysuria [Unknown]
  - Uterine cervix stenosis [Unknown]
  - Complication associated with device [Recovered/Resolved]
  - Streptococcal infection [Unknown]
  - Perineal pain [Unknown]
  - Pain [Recovered/Resolved]
  - Intermenstrual bleeding [Recovered/Resolved]
  - Vaginal discharge [Unknown]
  - Vaginal infection [Unknown]
  - Abdominal pain [Recovered/Resolved]
  - Device expulsion [Not Recovered/Not Resolved]
  - Muscle spasms [Unknown]
  - Discomfort [Unknown]
  - Pelvic pain [Unknown]

NARRATIVE: CASE EVENT DATE: 20160101
